FAERS Safety Report 14954445 (Version 1)
Quarter: 2018Q2

REPORT INFORMATION
  Report Type: Spontaneous
  Country: JP (occurrence: JP)
  Receive Date: 20180530
  Receipt Date: 20180530
  Transmission Date: 20180711
  Serious: Yes (Other)
  Sender: FDA-Public Use
  Company Number: JP-COLLEGIUM PHARMACEUTICAL, INC.-JP-2018DEP000898

PATIENT
  Age: 75 Year
  Sex: Male
  Weight: 58 kg

DRUGS (9)
  1. OXINORM                            /00045603/ [Concomitant]
     Active Substance: OXYCODONE HYDROCHLORIDE
     Indication: CANCER PAIN
     Dosage: UNK
     Dates: start: 20161108
  2. OXINORM                            /00045603/ [Concomitant]
     Active Substance: OXYCODONE HYDROCHLORIDE
     Dosage: UNK
  3. DAIKENCHUTO [Concomitant]
     Active Substance: HERBALS
     Indication: CONSTIPATION
     Dosage: UNK
  4. MIRTAZAPINE. [Concomitant]
     Active Substance: MIRTAZAPINE
     Indication: INSOMNIA
     Dosage: UNK
     Dates: start: 20180206
  5. TAKEPRON [Concomitant]
     Active Substance: LANSOPRAZOLE
     Indication: ABDOMINAL DISCOMFORT
     Dosage: UNK
     Dates: start: 20160812
  6. TAPENTADOL HYDROCHLORIDE [Suspect]
     Active Substance: TAPENTADOL HYDROCHLORIDE
     Indication: CANCER PAIN
     Dosage: 400 MG, QD
     Dates: start: 20180214, end: 20180312
  7. MAGNESIUM OXIDE. [Concomitant]
     Active Substance: MAGNESIUM OXIDE
     Indication: CONSTIPATION
     Dosage: UNK
     Dates: start: 20160927
  8. SYMPROIC [Concomitant]
     Active Substance: NALDEMEDINE
     Indication: CONSTIPATION
     Dosage: UNK
     Dates: start: 20180202
  9. OXIFAST [Concomitant]
     Active Substance: OXYCODONE
     Indication: CANCER PAIN
     Dosage: UNK
     Dates: start: 2018

REACTIONS (4)
  - Ascites [Unknown]
  - Photopsia [Recovered/Resolved]
  - Decreased appetite [Recovering/Resolving]
  - Cholangitis [Unknown]

NARRATIVE: CASE EVENT DATE: 2018
